APPROVED DRUG PRODUCT: TREXIMET
Active Ingredient: NAPROXEN SODIUM; SUMATRIPTAN SUCCINATE
Strength: 60MG;EQ 10MG BASE
Dosage Form/Route: TABLET;ORAL
Application: N021926 | Product #002
Applicant: CURRAX PHARMACEUTICALS LLC
Approved: May 14, 2015 | RLD: Yes | RS: No | Type: DISCN

PATENTS:
Patent 7332183 | Expires: Oct 2, 2025
Patent 7332183*PED | Expires: Apr 2, 2026